APPROVED DRUG PRODUCT: TRIMOX
Active Ingredient: AMOXICILLIN
Strength: 125MG/5ML
Dosage Form/Route: FOR SUSPENSION;ORAL
Application: A061886 | Product #002
Applicant: APOTHECON INC DIV BRISTOL MYERS SQUIBB
Approved: Approved Prior to Jan 1, 1982 | RLD: No | RS: No | Type: DISCN